FAERS Safety Report 8407048-0 (Version None)
Quarter: 2012Q2

REPORT INFORMATION
  Report Type: 
  Country: None (occurrence: None)
  Receive Date: 20120604
  Receipt Date: 20120528
  Transmission Date: 20120825
  Serious: Yes (Life-Threatening, Hospitalization, Disabling)
  Sender: FDA-Public Use
  Company Number: PHHY2012CA016148

PATIENT
  Sex: Female
  Weight: 157 kg

DRUGS (9)
  1. NORVASC [Concomitant]
     Dosage: 1 DF, DAILY
  2. LIPITOR [Concomitant]
     Route: 048
  3. ESOMEPRAZOLE MAGNESIUM [Concomitant]
     Dosage: 40 MG, DALILY
  4. RASILEZ [Suspect]
     Indication: HYPERTENSION
     Dosage: 150 MG, DAILY
     Dates: start: 20110512, end: 20120202
  5. JANUVIA [Concomitant]
     Dosage: 1 DF, DAILY
     Route: 048
  6. AVAPRO [Concomitant]
     Dosage: 1 DF, DAILY
  7. METFORMIN HCL [Concomitant]
     Dosage: 850 MG, TID
     Route: 048
  8. VITAMIN B-12 [Concomitant]
     Dosage: 1 DF, DAILY
     Route: 048
  9. IRBESARTAN [Concomitant]
     Dosage: 1 DF, DAILY
     Route: 048
     Dates: start: 20110101

REACTIONS (9)
  - MUSCULAR WEAKNESS [None]
  - EATING DISORDER [None]
  - SPEECH DISORDER [None]
  - ANXIETY [None]
  - CEREBROVASCULAR ACCIDENT [None]
  - HEMIPARESIS [None]
  - DYSPHAGIA [None]
  - APHASIA [None]
  - CONFUSIONAL STATE [None]
